FAERS Safety Report 5372784-X (Version None)
Quarter: 2007Q2

REPORT INFORMATION
  Report Type: 
  Country: None (occurrence: None)
  Receive Date: 20070621
  Receipt Date: 20061006
  Transmission Date: 20071010
  Serious: Yes (Hospitalization)
  Sender: FDA-Public Use
  Company Number: US-JNJFOC-20060900971

PATIENT
  Age: 80 Year
  Sex: Male

DRUGS (11)
  1. HALDOL (HALOPERIDOL) UNSPECIFIED [Suspect]
     Indication: DRUG USE FOR UNKNOWN INDICATION
     Dosage: ORAL; 5 MG, 2 IN 1 DAY, ORAL
     Route: 048
     Dates: start: 20060101, end: 20060101
  2. HALDOL (HALOPERIDOL) UNSPECIFIED [Suspect]
     Indication: DRUG USE FOR UNKNOWN INDICATION
     Dosage: ORAL; 5 MG, 2 IN 1 DAY, ORAL
     Route: 048
     Dates: start: 20060101, end: 20060803
  3. HALDOL (HALOPERIDOL) UNSPECIFIED [Suspect]
     Indication: DRUG USE FOR UNKNOWN INDICATION
     Dosage: ORAL; 5 MG, 2 IN 1 DAY, ORAL
     Route: 048
     Dates: start: 20060804, end: 20060825
  4. NAMENDA [Suspect]
     Indication: DEMENTIA
     Dosage: 5 MG, 2 IN 1 DAY, ORAL
     Route: 048
     Dates: end: 20060101
  5. CLARITIN [Concomitant]
  6. DIOVAN [Concomitant]
  7. ACTOS [Concomitant]
  8. COREG [Concomitant]
  9. ANTIVERT [Concomitant]
  10. AMBIEN [Concomitant]
  11. CELECOXIB [Concomitant]

REACTIONS (2)
  - HALLUCINATION [None]
  - TREMOR [None]
